FAERS Safety Report 8376822-1 (Version None)
Quarter: 2012Q2

REPORT INFORMATION
  Report Type: 
  Country: None (occurrence: None)
  Receive Date: 20120522
  Receipt Date: 20120514
  Transmission Date: 20120825
  Serious: Yes (Hospitalization)
  Sender: FDA-Public Use
  Company Number: CH-UCBSA-053746

PATIENT
  Age: 71 Year
  Sex: Male
  Weight: 75 kg

DRUGS (29)
  1. NEUPRO [Suspect]
     Indication: PARKINSON'S DISEASE
     Dosage: FREQUENCY CODE :OTHER ONCES EVERY OTHER DAY
     Route: 062
     Dates: start: 20110607, end: 20120223
  2. NEUPRO [Suspect]
     Route: 062
     Dates: start: 20080929, end: 20090504
  3. MADOPAR [Concomitant]
     Dates: start: 20120117, end: 20120227
  4. PANTOPRAZOLE [Concomitant]
     Indication: GASTROOESOPHAGEAL REFLUX DISEASE
     Dates: end: 20110614
  5. ARANESP [Concomitant]
     Indication: RENAL FAILURE
     Dosage: FREQUENCY CODE :EVERY OTHER WEEK
     Route: 058
     Dates: end: 20120302
  6. ARANESP [Concomitant]
     Dates: start: 20120303
  7. MADOPAR [Concomitant]
     Dates: start: 20120310
  8. VITARUBIN [Concomitant]
     Indication: RENAL FAILURE
     Route: 051
  9. PANTOPRAZOLE [Concomitant]
     Dates: start: 20110615
  10. NEPHROTRANS [Concomitant]
     Indication: RENAL FAILURE
  11. ZEMPLAR [Concomitant]
     Indication: RENAL FAILURE
  12. NEUPRO [Suspect]
     Dosage: FREQUENCY CODE :OTHER ONCES EVERY OTHER DAY
     Route: 062
     Dates: start: 20110606, end: 20120223
  13. NEUPRO [Suspect]
     Route: 062
     Dates: start: 20080912, end: 20080919
  14. MADOPAR [Concomitant]
     Indication: PARKINSON'S DISEASE
     Dates: start: 20091109, end: 20120116
  15. IRBESARTAN [Concomitant]
     Indication: HYPERTENSION
  16. DIALVIT [Concomitant]
     Indication: RENAL FAILURE
     Dosage: UNKNOWN DOSE
     Dates: start: 20110617
  17. NEUPRO [Suspect]
     Route: 062
     Dates: start: 20100308, end: 20110606
  18. NEUPRO [Suspect]
     Route: 062
     Dates: start: 20090505, end: 20090512
  19. NEUPRO [Suspect]
     Route: 062
     Dates: start: 20080904, end: 20080911
  20. VIDE [Concomitant]
     Indication: RENAL FAILURE
     Dosage: 20 OTHER DROPS
     Dates: start: 20110617
  21. TORSEMIDE [Concomitant]
     Indication: RENAL FAILURE
     Dates: end: 20120220
  22. NEUPRO [Suspect]
     Route: 062
     Dates: start: 20100223, end: 20100307
  23. NEUPRO [Suspect]
     Route: 062
     Dates: start: 20090513, end: 20100222
  24. MADOPAR [Concomitant]
     Dates: start: 20120228, end: 20120309
  25. ACIDUM FOLICUM [Concomitant]
     Indication: MULTIPLE MYELOMA
     Dates: start: 20080101
  26. ZOLPIDEM [Concomitant]
     Indication: SLEEP DISORDER
     Dates: start: 20110617
  27. NEUPRO [Suspect]
     Route: 062
     Dates: start: 20080920, end: 20080928
  28. CALCIMAGON D3 [Concomitant]
     Indication: MULTIPLE MYELOMA
     Dates: start: 20080101
  29. TOLTERODINE TARTRATE [Concomitant]
     Indication: RENAL FAILURE
     Dates: start: 20110617

REACTIONS (1)
  - GENERAL PHYSICAL HEALTH DETERIORATION [None]
